FAERS Safety Report 4545457-0 (Version None)
Quarter: 2005Q1

REPORT INFORMATION
  Report Type: 
  Country: None (occurrence: None)
  Receive Date: 20050103
  Receipt Date: 20041115
  Transmission Date: 20050727
  Serious: Yes (Other)
  Sender: FDA-Public Use
  Company Number: 2004097769

PATIENT
  Age: 80 Year
  Sex: Female
  Weight: 61.2356 kg

DRUGS (2)
  1. DETROL LA [Suspect]
     Indication: HYPERTONIC BLADDER
     Dosage: 4 MG (4 MG, DIALY INTERVAL:EVERY DAY), ORAL
     Route: 048
     Dates: start: 20041008, end: 20041101
  2. LEVOTHYROXINE SODIUM [Concomitant]

REACTIONS (4)
  - BURNING SENSATION [None]
  - CHILLS [None]
  - GLAUCOMA [None]
  - URINARY TRACT INFECTION [None]
